FAERS Safety Report 9386916 (Version 1)
Quarter: 2013Q3

REPORT INFORMATION
  Report Type: Spontaneous
  Country: GR (occurrence: GR)
  Receive Date: 20130708
  Receipt Date: 20130708
  Transmission Date: 20140515
  Serious: Yes (Other)
  Sender: FDA-Public Use
  Company Number: GR-ROCHE-1244610

PATIENT
  Age: 47 Year
  Sex: Female

DRUGS (12)
  1. TRASTUZUMAB [Suspect]
     Indication: INVASIVE DUCTAL BREAST CARCINOMA
     Route: 065
  2. TRASTUZUMAB [Suspect]
     Indication: METASTASES TO BONE
     Route: 065
     Dates: start: 201212
  3. BEVACIZUMAB [Suspect]
     Indication: INVASIVE DUCTAL BREAST CARCINOMA
     Route: 065
  4. CAPECITABINE [Suspect]
     Indication: INVASIVE DUCTAL BREAST CARCINOMA
     Route: 065
  5. TAMOXIFEN [Concomitant]
     Indication: INVASIVE DUCTAL BREAST CARCINOMA
     Route: 065
     Dates: start: 201212
  6. TAMOXIFEN [Concomitant]
     Indication: METASTASES TO BONE
  7. GOSERELIN [Concomitant]
     Indication: INVASIVE DUCTAL BREAST CARCINOMA
     Route: 065
     Dates: start: 201212
  8. GOSERELIN [Concomitant]
     Indication: METASTASES TO BONE
  9. PACLITAXEL [Concomitant]
     Indication: INVASIVE DUCTAL BREAST CARCINOMA
     Route: 065
  10. LAPATINIB [Concomitant]
     Indication: INVASIVE DUCTAL BREAST CARCINOMA
     Route: 065
     Dates: start: 201212
  11. ZOLEDRONIC ACID [Concomitant]
     Indication: INVASIVE DUCTAL BREAST CARCINOMA
     Route: 065
     Dates: start: 201212
  12. ZOLEDRONIC ACID [Concomitant]
     Indication: METASTASES TO BONE

REACTIONS (5)
  - Metastases to bone [Unknown]
  - Disease progression [Unknown]
  - Metastases to central nervous system [Unknown]
  - Ataxia [Unknown]
  - Disorientation [Unknown]
